FAERS Safety Report 18060984 (Version 2)
Quarter: 2020Q3

REPORT INFORMATION
  Report Type: Report from Study
  Country: US (occurrence: US)
  Receive Date: 20200723
  Receipt Date: 20200911
  Transmission Date: 20201103
  Serious: Yes (Death, Hospitalization)
  Sender: FDA-Public Use
  Company Number: US-TAKEDA-2020TUS016258

PATIENT
  Sex: Male

DRUGS (3)
  1. PONATINIB [Suspect]
     Active Substance: PONATINIB
     Indication: CHRONIC MYELOID LEUKAEMIA
     Dosage: 30 MILLIGRAM, QD
     Route: 048
     Dates: start: 202002
  2. DIGOXIN. [Concomitant]
     Active Substance: DIGOXIN
     Dosage: UNK
     Route: 065
  3. BOSULIF [Concomitant]
     Active Substance: BOSUTINIB MONOHYDRATE
     Dosage: UNK

REACTIONS (10)
  - Dysphonia [Unknown]
  - Arrhythmia [Unknown]
  - Stent placement [Unknown]
  - Fatigue [Unknown]
  - Death [Fatal]
  - Asthenia [Unknown]
  - Muscular weakness [Unknown]
  - Cardiac disorder [Unknown]
  - General physical health deterioration [Unknown]
  - Dizziness [Unknown]
